FAERS Safety Report 10103482 (Version 1)
Quarter: 2014Q2

REPORT INFORMATION
  Report Type: Spontaneous
  Country: US (occurrence: US)
  Receive Date: 20140424
  Receipt Date: 20140424
  Transmission Date: 20141212
  Serious: Yes (Other)
  Sender: FDA-Public Use
  Company Number: US-BRISTOL-MYERS SQUIBB COMPANY-20415303

PATIENT
  Age: 71 Year
  Sex: Female
  Weight: 68.03 kg

DRUGS (14)
  1. ELIQUIS [Suspect]
     Dates: start: 201311
  2. WARFARIN SODIUM [Suspect]
  3. GLYBURIDE [Concomitant]
  4. METFORMIN [Concomitant]
  5. LEVEMIR [Concomitant]
     Dosage: 8 UNITS
  6. DIGOXIN [Concomitant]
  7. LASIX [Concomitant]
  8. CARVEDILOL [Concomitant]
     Indication: BLOOD PRESSURE
  9. CALCIUM [Concomitant]
  10. POTASSIUM [Concomitant]
  11. FISH OIL [Concomitant]
  12. GARLIC [Concomitant]
  13. VITAMIN C [Concomitant]
  14. MULTIVITAMIN [Concomitant]

REACTIONS (3)
  - Thrombosis [Unknown]
  - Thyroid disorder [Unknown]
  - Wrong technique in drug usage process [Unknown]
